FAERS Safety Report 6108684-7 (Version None)
Quarter: 2009Q1

REPORT INFORMATION
  Report Type: 
  Country: None (occurrence: None)
  Receive Date: 20090305
  Receipt Date: 20090220
  Transmission Date: 20090719
  Serious: Yes (Other)
  Sender: FDA-Public Use
  Company Number: 2008002471

PATIENT
  Age: 77 Year
  Sex: Female
  Weight: 52.5 kg

DRUGS (6)
  1. ERLOTINIB               (TABLET) (ERLOTINIB) [Suspect]
     Indication: LUNG SQUAMOUS CELL CARCINOMA STAGE UNSPECIFIED
     Dosage: (150 MG, QD), ORAL : (50 MG, QD), ORAL
     Route: 048
     Dates: start: 20080728, end: 20080814
  2. ERLOTINIB               (TABLET) (ERLOTINIB) [Suspect]
     Indication: LUNG SQUAMOUS CELL CARCINOMA STAGE UNSPECIFIED
     Dosage: (150 MG, QD), ORAL : (50 MG, QD), ORAL
     Route: 048
     Dates: start: 20080731, end: 20080814
  3. NEORAL [Suspect]
     Dosage: (100 MG, QD), ORAL
     Route: 048
  4. NEUQUINON (UBIDECARENONE) [Concomitant]
  5. BACTRIM [Concomitant]
  6. LASIX [Concomitant]

REACTIONS (4)
  - DRUG INTERACTION [None]
  - NEUTROPHIL COUNT DECREASED [None]
  - PLATELET COUNT DECREASED [None]
  - RASH [None]
